FAERS Safety Report 11189011 (Version 1)
Quarter: 2015Q2

REPORT INFORMATION
  Report Type: Spontaneous
  Country: FR (occurrence: None)
  Receive Date: 20150611
  Receipt Date: 20150611
  Transmission Date: 20150821
  Serious: Yes (Other)
  Sender: FDA-Public Use
  Company Number: 2015-JUB00163

PATIENT
  Age: 39 Year
  Sex: Male

DRUGS (6)
  1. HALOPERIDOL DECANOATE. [Concomitant]
     Active Substance: HALOPERIDOL DECANOATE
  2. PRAZEPAM [Concomitant]
     Active Substance: PRAZEPAM
  3. TROPATEPINE [Suspect]
     Active Substance: TROPATEPINE
     Indication: PROPHYLAXIS
  4. VALPROMIDE [Concomitant]
     Active Substance: VALPROMIDE
  5. LACTULOSE. [Concomitant]
     Active Substance: LACTULOSE
  6. QUETIAPINE (QUETIAPINE) UNKNOWN, UNKNOWN [Suspect]
     Active Substance: QUETIAPINE

REACTIONS (3)
  - Colitis ischaemic [None]
  - Drug interaction [None]
  - Metabolic acidosis [None]
